FAERS Safety Report 10217486 (Version 1)
Quarter: 2014Q2

REPORT INFORMATION
  Report Type: Spontaneous
  Country: US (occurrence: US)
  Receive Date: 20140604
  Receipt Date: 20140604
  Transmission Date: 20141212
  Serious: No
  Sender: FDA-Public Use
  Company Number: US-ASTRAZENECA-2013SE84613

PATIENT
  Age: 74 Year
  Sex: Female
  Weight: 81.6 kg

DRUGS (5)
  1. VIMOVO [Suspect]
     Indication: ARTHRITIS
     Dosage: 500-20MG DAILY
     Route: 048
     Dates: start: 201311, end: 20131109
  2. AMLODIPINE [Concomitant]
     Indication: BLOOD PRESSURE ABNORMAL
  3. MELOXICAM [Concomitant]
     Indication: ARTHRITIS
     Dosage: 15MG
  4. SYNTHROID [Concomitant]
     Indication: THYROID DISORDER
  5. LYRICA [Concomitant]
     Dosage: HS

REACTIONS (5)
  - Abdominal distension [Recovered/Resolved]
  - Fluid retention [Recovered/Resolved]
  - Adverse event [Recovered/Resolved]
  - Fatigue [Recovered/Resolved]
  - Nervousness [Recovered/Resolved]
